FAERS Safety Report 8234926-8 (Version None)
Quarter: 2012Q1

REPORT INFORMATION
  Report Type: 
  Country: None (occurrence: None)
  Receive Date: 20120326
  Receipt Date: 20120319
  Transmission Date: 20120608
  Serious: Yes (Other)
  Sender: FDA-Public Use
  Company Number: DE-UCBSA-044174

PATIENT
  Age: 69 Year
  Sex: Male

DRUGS (10)
  1. L-THYROSIN [Concomitant]
     Indication: HYPOTHYROIDISM
  2. METOPROLOL SUCCINATE [Concomitant]
     Indication: HYPERTENSION
     Dates: start: 20110501
  3. CALCIUM + VIT D [Concomitant]
     Indication: OSTEOPOROSIS PROPHYLAXIS
  4. METHOTREXATE [Concomitant]
     Indication: RHEUMATOID ARTHRITIS
     Dosage: QUANTITY SUFFICIENT
     Dates: start: 20020101
  5. PREDNISONE TAB [Concomitant]
     Indication: RHEUMATOID ARTHRITIS
     Dates: start: 19970101, end: 20110715
  6. PREDNISONE TAB [Concomitant]
     Dates: start: 20110715
  7. CERTOLIZUMAB PEGOL [Suspect]
     Indication: RHEUMATOID ARTHRITIS
     Route: 058
     Dates: start: 20110527, end: 20110708
  8. FOLIC ACID [Concomitant]
     Indication: PROPHYLAXIS
     Dosage: QUANTITY SUFFICIENT
  9. DICLOFENAC SODIUM [Concomitant]
     Indication: RHEUMATOID ARTHRITIS
     Dates: start: 19970101
  10. PANTOPRAZOLE [Concomitant]
     Indication: GASTRIC ULCER

REACTIONS (3)
  - ROSACEA [None]
  - INJECTION SITE REACTION [None]
  - RASH [None]
